FAERS Safety Report 26011169 (Version 1)
Quarter: 2025Q4

REPORT INFORMATION
  Report Type: Spontaneous
  Country: US (occurrence: US)
  Receive Date: 20251107
  Receipt Date: 20251107
  Transmission Date: 20260118
  Serious: No
  Sender: TEVA
  Company Number: US-TEVA-VS-3386944

PATIENT
  Sex: Female

DRUGS (1)
  1. TERIPARATIDE [Suspect]
     Active Substance: TERIPARATIDE
     Indication: Product used for unknown indication
     Dosage: TERIPARATIDE, INJECTABLE SOLUTION, 560 MCG/2.24 ML, NDC NO: 00093110616
     Route: 065
     Dates: start: 2025

REACTIONS (4)
  - Arthralgia [Unknown]
  - Poor quality product administered [Unknown]
  - Product storage error [Unknown]
  - Product dose omission in error [Unknown]

NARRATIVE: CASE EVENT DATE: 20250101
